FAERS Safety Report 10662901 (Version 2)
Quarter: 2014Q4

REPORT INFORMATION
  Report Type: Report from Study
  Country: US (occurrence: US)
  Receive Date: 20141218
  Receipt Date: 20141218
  Transmission Date: 20150529
  Serious: Yes (Hospitalization, Other)
  Sender: FDA-Public Use
  Company Number: US-GILEAD-2014-0125382

PATIENT
  Age: 88 Year
  Sex: Female

DRUGS (3)
  1. OMEGA 3                            /01334101/ [Concomitant]
     Active Substance: OMEGA-3 FATTY ACIDS
     Dosage: UNK
  2. CALCIUM [Concomitant]
     Active Substance: CALCIUM
     Dosage: UNK
  3. IDELALISIB [Suspect]
     Active Substance: IDELALISIB
     Indication: CHRONIC LYMPHOCYTIC LEUKAEMIA
     Dosage: 100 MG, UNK
     Route: 048
     Dates: start: 20141104, end: 20141110

REACTIONS (7)
  - Alopecia [Unknown]
  - Dyspnoea [Unknown]
  - Pyrexia [Unknown]
  - Malaise [Unknown]
  - Pneumonia [Unknown]
  - Decreased appetite [Unknown]
  - Asthenia [Unknown]

NARRATIVE: CASE EVENT DATE: 20141108
